FAERS Safety Report 13863080 (Version 2)
Quarter: 2017Q3

REPORT INFORMATION
  Report Type: Spontaneous
  Country: US (occurrence: US)
  Receive Date: 20170814
  Receipt Date: 20170822
  Transmission Date: 20171127
  Serious: Yes (Other)
  Sender: FDA-Public Use
  Company Number: US-AUROBINDO-AUR-APL-2017-38559

PATIENT
  Age: 68 Year
  Sex: Female

DRUGS (2)
  1. DEXAMETHASONE. [Suspect]
     Active Substance: DEXAMETHASONE
     Indication: COLON CANCER
     Dosage: 4 MG, EVERY FOUR HOURS
     Route: 042
  2. PREDNISONE. [Suspect]
     Active Substance: PREDNISONE
     Indication: COLON CANCER
     Dosage: 80 MG, TWO TIMES A DAY
     Route: 065

REACTIONS (2)
  - Herpes zoster [Unknown]
  - Escherichia bacteraemia [Unknown]
